FAERS Safety Report 18640035 (Version 2)
Quarter: 2021Q4

REPORT INFORMATION
  Report Type: Spontaneous
  Country: US (occurrence: US)
  Receive Date: 20201220
  Receipt Date: 20211217
  Transmission Date: 20220303
  Serious: No
  Sender: FDA-Public Use
  Company Number: US-PACIRA-202000410

PATIENT
  Age: 47 Year
  Sex: Female

DRUGS (9)
  1. EXPAREL [Suspect]
     Active Substance: BUPIVACAINE
     Dosage: 133 MG (10 ML) WITH 10 ML OF 0.5% BUP?VACAINE
     Route: 065
     Dates: start: 20200928, end: 20200928
  2. BUPIVACAINE [Suspect]
     Active Substance: BUPIVACAINE
     Dosage: 10 ML WITH 10 ML OF EXPAREL
     Route: 065
     Dates: start: 20200928, end: 20200928
  3. ANCEF [Concomitant]
     Active Substance: CEFAZOLIN SODIUM
     Dosage: 2 G PREOPERATIVELY
     Route: 042
  4. CYCLOBENZAPRINE [Concomitant]
     Active Substance: CYCLOBENZAPRINE
     Dosage: 10 (UNIT NOT PROVIDED), TABLET AT BEDTIME
     Route: 048
  5. HYDROCHLOROTHIAZIDE [Concomitant]
     Active Substance: HYDROCHLOROTHIAZIDE
     Dosage: 12.5 (UNIT NOT PROVIDED), CAPSULE IN THE MORNING
     Route: 048
  6. LEVOTHYROXINE [Concomitant]
     Active Substance: LEVOTHYROXINE
     Dosage: 75 (UNIT NOT PROVIDED) TABLET IN THE MORNING
     Route: 048
  7. NAPROXEN [Concomitant]
     Active Substance: NAPROXEN
     Dosage: 500 (UNIT NOT PROVIDED), TABLET TWICE A DAY
     Route: 048
  8. NORETHINDRONE [Concomitant]
     Active Substance: NORETHINDRONE
     Dosage: 0.35 (UNIT NOT PROVIDED), 1 TABLET IN THE MORNING
     Route: 048
  9. VITAMINS [Concomitant]
     Active Substance: VITAMINS
     Dosage: NOT PROVIDED
     Route: 065

REACTIONS (2)
  - Drug ineffective [Recovered/Resolved]
  - Pain [Recovered/Resolved]

NARRATIVE: CASE EVENT DATE: 20200928
